FAERS Safety Report 8311829-1 (Version None)
Quarter: 2012Q2

REPORT INFORMATION
  Report Type: 
  Country: None (occurrence: None)
  Receive Date: 20120425
  Receipt Date: 20120423
  Transmission Date: 20120825
  Serious: Yes (Other)
  Sender: FDA-Public Use
  Company Number: US-PFIZER INC-2012067302

PATIENT
  Sex: Female
  Weight: 77.098 kg

DRUGS (1)
  1. CHANTIX [Suspect]
     Indication: SMOKING CESSATION THERAPY
     Dosage: UNK
     Dates: start: 20120201

REACTIONS (12)
  - THYROID FUNCTION TEST ABNORMAL [None]
  - SUICIDAL IDEATION [None]
  - ILL-DEFINED DISORDER [None]
  - ABORTION SPONTANEOUS [None]
  - MATERNAL DRUGS AFFECTING FOETUS [None]
  - EMOTIONAL DISORDER [None]
  - DEPRESSED MOOD [None]
  - SURGERY [None]
  - MENTAL DISORDER [None]
  - DRUG INEFFECTIVE [None]
  - ASTHENIA [None]
  - PROCEDURAL PAIN [None]
